FAERS Safety Report 14176838 (Version 1)
Quarter: 2017Q4

REPORT INFORMATION
  Report Type: Spontaneous
  Country: US (occurrence: None)
  Receive Date: 20171110
  Receipt Date: 20171110
  Transmission Date: 20180321
  Serious: No
  Sender: FDA-Public Use
  Company Number: None

PATIENT
  Age: 69 Year
  Sex: Female

DRUGS (1)
  1. CAPECITABINE 500MG [Suspect]
     Active Substance: CAPECITABINE
     Indication: NEOPLASM MALIGNANT
     Dosage: 500MG 2 TABLETS TWICE DAILY FOR 14 DAYS ON THEN 7 DAYS OFF ORALLY
     Route: 048
     Dates: start: 20170829

REACTIONS (2)
  - Speech disorder [None]
  - Dysphagia [None]

NARRATIVE: CASE EVENT DATE: 20171109
